FAERS Safety Report 17888112 (Version 1)
Quarter: 2020Q2

REPORT INFORMATION
  Report Type: Spontaneous
  Country: US (occurrence: US)
  Receive Date: 20200611
  Receipt Date: 20200611
  Transmission Date: 20200714
  Serious: No
  Sender: FDA-Public Use
  Company Number: None

PATIENT
  Age: 61 Year
  Sex: Male

DRUGS (1)
  1. REBIF REBIDOSE [Suspect]
     Active Substance: INTERFERON BETA-1A
     Indication: MULTIPLE SCLEROSIS
     Dosage: ?          OTHER STRENGTH:44MCG/.5ML;?
     Route: 058

REACTIONS (5)
  - Headache [None]
  - Abdominal pain upper [None]
  - Chest discomfort [None]
  - Vomiting [None]
  - Extra dose administered [None]

NARRATIVE: CASE EVENT DATE: 20200603
